FAERS Safety Report 19239680 (Version 2)
Quarter: 2021Q2

REPORT INFORMATION
  Report Type: Report from Study
  Country: None (occurrence: CA)
  Receive Date: 20210511
  Receipt Date: 20210607
  Transmission Date: 20210717
  Serious: Yes (Death)
  Sender: FDA-Public Use
  Company Number: CA-ABBVIE-21K-028-3898105-00

PATIENT
  Age: 61 Year
  Sex: Male
  Weight: 104 kg

DRUGS (8)
  1. MAVIRET [Suspect]
     Active Substance: GLECAPREVIR\PIBRENTASVIR
     Indication: CHRONIC HEPATITIS C
     Dosage: 100 MG TO 400 MG, 3 TABLETS
     Route: 048
     Dates: start: 20210503, end: 20210505
  2. PANTOLOC [Concomitant]
     Active Substance: PANTOPRAZOLE SODIUM
     Indication: DYSPEPSIA
     Route: 048
     Dates: start: 20191120, end: 20210505
  3. METADOL [Concomitant]
     Indication: DRUG WITHDRAWAL MAINTENANCE THERAPY
     Route: 048
     Dates: start: 20191119, end: 20210505
  4. NAPROXEN. [Concomitant]
     Active Substance: NAPROXEN
     Indication: PAIN IN EXTREMITY
  5. AMLODIPINE [Concomitant]
     Active Substance: AMLODIPINE BESYLATE
     Indication: HYPERTENSION
     Route: 048
     Dates: start: 20200102, end: 20200102
  6. CANDESARTAN. [Concomitant]
     Active Substance: CANDESARTAN
     Indication: HYPERTENSION
     Route: 048
     Dates: start: 20200102, end: 20210505
  7. TRAZODONE [Concomitant]
     Active Substance: TRAZODONE HYDROCHLORIDE
     Indication: DEPRESSION
     Route: 048
     Dates: start: 20201104, end: 20210505
  8. VENLAFAXINE [Concomitant]
     Active Substance: VENLAFAXINE HYDROCHLORIDE
     Indication: PRODUCT USED FOR UNKNOWN INDICATION
     Route: 048
     Dates: start: 20210304, end: 20210505

REACTIONS (2)
  - Cardiac disorder [Fatal]
  - Alcohol use [Unknown]

NARRATIVE: CASE EVENT DATE: 2021
